FAERS Safety Report 14391652 (Version 5)
Quarter: 2022Q4

REPORT INFORMATION
  Report Type: Other
  Country: None (occurrence: DE)
  Receive Date: 20180116
  Receipt Date: 20221020
  Transmission Date: 20230113
  Serious: Yes (Hospitalization, Other)
  Sender: FDA-Public Use
  Company Number: DE-RARE DISEASE THERAPEUTICS, INC.-2040093

PATIENT
  Age: 34 Month
  Sex: Male
  Weight: 12.20 kg

DRUGS (70)
  1. PURIXAN [Suspect]
     Active Substance: MERCAPTOPURINE
     Indication: Product used for unknown indication
     Route: 048
  2. GLIVEC [Suspect]
     Active Substance: IMATINIB MESYLATE
     Route: 048
     Dates: start: 20150921, end: 20170307
  3. CYTARABINE [Suspect]
     Active Substance: CYTARABINE
     Route: 042
  4. CYTARABINE [Suspect]
     Active Substance: CYTARABINE
     Route: 042
     Dates: start: 20151109, end: 20151112
  5. CYTARABINE [Suspect]
     Active Substance: CYTARABINE
     Route: 042
     Dates: start: 20151019, end: 20151222
  6. CYTARABINE [Suspect]
     Active Substance: CYTARABINE
     Route: 042
     Dates: start: 20151102, end: 20151105
  7. CYTARABINE [Suspect]
     Active Substance: CYTARABINE
     Route: 042
     Dates: start: 20151221
  8. CYTARABINE [Suspect]
     Active Substance: CYTARABINE
     Route: 042
     Dates: start: 20160204, end: 20160206
  9. CYTARABINE [Suspect]
     Active Substance: CYTARABINE
     Route: 042
  10. CYTARABINE [Suspect]
     Active Substance: CYTARABINE
     Route: 042
     Dates: start: 20151026, end: 20151029
  11. CYTARABINE [Suspect]
     Active Substance: CYTARABINE
     Route: 042
  12. CYTARABINE [Suspect]
     Active Substance: CYTARABINE
     Route: 042
  13. CYTARABINE [Suspect]
     Active Substance: CYTARABINE
     Route: 037
     Dates: start: 20160208, end: 20160208
  14. CYTARABINE [Suspect]
     Active Substance: CYTARABINE
     Route: 065
     Dates: start: 20160811
  15. DAUNORUBICIN [Suspect]
     Active Substance: DAUNORUBICIN
     Route: 042
     Dates: start: 20160118, end: 20160119
  16. ASPARAGINASE [Suspect]
     Active Substance: ASPARAGINASE
     Route: 042
     Dates: start: 20160209, end: 20160209
  17. ASPARAGINASE [Suspect]
     Active Substance: ASPARAGINASE
     Route: 042
     Dates: start: 20151223, end: 20151223
  18. ASPARAGINASE [Suspect]
     Active Substance: ASPARAGINASE
     Route: 042
     Dates: start: 20160306
  19. ASPARAGINASE [Suspect]
     Active Substance: ASPARAGINASE
     Route: 042
     Dates: start: 20160303
  20. ASPARAGINASE [Suspect]
     Active Substance: ASPARAGINASE
     Route: 042
     Dates: start: 20160313
  21. ASPARAGINASE [Suspect]
     Active Substance: ASPARAGINASE
     Route: 042
     Dates: start: 20160620
  22. ASPARAGINASE [Suspect]
     Active Substance: ASPARAGINASE
     Route: 042
  23. ASPARAGINASE [Suspect]
     Active Substance: ASPARAGINASE
     Route: 042
  24. ASPARAGINASE [Suspect]
     Active Substance: ASPARAGINASE
     Route: 042
  25. ASPARAGINASE [Suspect]
     Active Substance: ASPARAGINASE
     Route: 042
     Dates: start: 20160630
  26. ASPARAGINASE [Suspect]
     Active Substance: ASPARAGINASE
     Route: 042
     Dates: start: 20160310
  27. ASPARAGINASE [Suspect]
     Active Substance: ASPARAGINASE
     Route: 042
     Dates: start: 20160627
  28. ETOPOSIDE [Suspect]
     Active Substance: ETOPOSIDE
     Route: 042
     Dates: start: 20160206, end: 20160208
  29. DOXORUBICIN [Suspect]
     Active Substance: DOXORUBICIN
     Route: 042
     Dates: start: 20160303
  30. DOXORUBICIN [Suspect]
     Active Substance: DOXORUBICIN
     Route: 042
     Dates: start: 20160620
  31. DOXORUBICIN [Suspect]
     Active Substance: DOXORUBICIN
     Route: 042
     Dates: start: 20160704
  32. DOXORUBICIN [Suspect]
     Active Substance: DOXORUBICIN
     Route: 042
     Dates: start: 20160324
  33. DOXORUBICIN [Suspect]
     Active Substance: DOXORUBICIN
     Route: 042
     Dates: start: 20160310
  34. DOXORUBICIN [Suspect]
     Active Substance: DOXORUBICIN
     Route: 042
     Dates: start: 20160712
  35. DOXORUBICIN [Suspect]
     Active Substance: DOXORUBICIN
     Route: 042
  36. DOXORUBICIN [Suspect]
     Active Substance: DOXORUBICIN
     Route: 065
     Dates: start: 20160712
  37. DOXORUBICIN [Suspect]
     Active Substance: DOXORUBICIN
     Route: 042
     Dates: start: 20160627
  38. METHOTREXATE [Suspect]
     Active Substance: METHOTREXATE
     Route: 065
     Dates: start: 20160208
  39. METHOTREXATE [Suspect]
     Active Substance: METHOTREXATE
     Route: 042
     Dates: start: 20151218, end: 20151219
  40. METHOTREXATE [Suspect]
     Active Substance: METHOTREXATE
     Route: 042
     Dates: start: 20160114, end: 20160115
  41. METHOTREXATE [Suspect]
     Active Substance: METHOTREXATE
     Route: 048
     Dates: start: 20160913
  42. IFOSFAMIDE [Suspect]
     Active Substance: IFOSFAMIDE
     Route: 042
     Dates: start: 20160115, end: 20160117
  43. CYCLOPHOSPHAMIDE [Suspect]
     Active Substance: CYCLOPHOSPHAMIDE
     Route: 042
     Dates: start: 20160416, end: 20160416
  44. CYCLOPHOSPHAMIDE [Suspect]
     Active Substance: CYCLOPHOSPHAMIDE
     Route: 042
     Dates: start: 20160730, end: 20160730
  45. CYCLOPHOSPHAMIDE [Suspect]
     Active Substance: CYCLOPHOSPHAMIDE
     Route: 042
     Dates: start: 20151017, end: 20151017
  46. CYCLOPHOSPHAMIDE [Suspect]
     Active Substance: CYCLOPHOSPHAMIDE
     Route: 042
     Dates: start: 20151219, end: 20151221
  47. CYCLOPHOSPHAMIDE [Suspect]
     Active Substance: CYCLOPHOSPHAMIDE
     Route: 042
     Dates: start: 20151203, end: 20151203
  48. VINCRISTINE [Suspect]
     Active Substance: VINCRISTINE
     Route: 042
     Dates: start: 20160303, end: 20160303
  49. VINCRISTINE [Suspect]
     Active Substance: VINCRISTINE
     Route: 042
     Dates: start: 20160704
  50. VINCRISTINE [Suspect]
     Active Substance: VINCRISTINE
     Route: 042
     Dates: start: 20160712, end: 20160712
  51. VINCRISTINE [Suspect]
     Active Substance: VINCRISTINE
     Route: 042
     Dates: start: 20160324
  52. VINCRISTINE [Suspect]
     Active Substance: VINCRISTINE
     Route: 042
     Dates: start: 20151218
  53. VINCRISTINE [Suspect]
     Active Substance: VINCRISTINE
     Route: 042
     Dates: start: 20151223, end: 20151223
  54. VINCRISTINE [Suspect]
     Active Substance: VINCRISTINE
     Route: 042
     Dates: start: 20160317
  55. VINCRISTINE [Suspect]
     Active Substance: VINCRISTINE
     Route: 042
     Dates: start: 20160310
  56. VINCRISTINE [Suspect]
     Active Substance: VINCRISTINE
     Route: 042
     Dates: start: 20160620
  57. VINCRISTINE [Suspect]
     Active Substance: VINCRISTINE
     Route: 042
     Dates: start: 20160627
  58. VINDESINE [Suspect]
     Active Substance: VINDESINE
     Route: 042
     Dates: start: 20160119, end: 20160119
  59. VINDESINE [Suspect]
     Active Substance: VINDESINE
     Route: 042
     Dates: start: 20160114
  60. DAUNORUBICIN [Suspect]
     Active Substance: DAUNORUBICIN
     Route: 065
  61. ASPARAGINASE [Suspect]
     Active Substance: ASPARAGINASE
     Route: 042
     Dates: start: 20160303
  62. ETOPOSIDE [Suspect]
     Active Substance: ETOPOSIDE
     Route: 065
  63. IFOSFAMIDE [Suspect]
     Active Substance: IFOSFAMIDE
     Route: 065
  64. IFOSFAMIDE [Suspect]
     Active Substance: IFOSFAMIDE
     Route: 065
  65. GLIVEC [Suspect]
     Active Substance: IMATINIB MESYLATE
     Route: 065
  66. GLIVEC [Suspect]
     Active Substance: IMATINIB MESYLATE
     Route: 065
  67. CYTARABINE [Suspect]
     Active Substance: CYTARABINE
  68. DAUNORUBICIN [Suspect]
     Active Substance: DAUNORUBICIN
  69. ASPARAGINASE [Suspect]
     Active Substance: ASPARAGINASE
  70. IFOSFAMIDE [Suspect]
     Active Substance: IFOSFAMIDE

REACTIONS (24)
  - Febrile neutropenia [Recovered/Resolved]
  - Hypoxia [Recovered/Resolved]
  - Febrile neutropenia [Recovered/Resolved]
  - Neutropenia [Recovered/Resolved]
  - Urinary tract infection [Unknown]
  - Neutropenia [Recovered/Resolved]
  - Hypoxia [Unknown]
  - Febrile neutropenia [Recovered/Resolved]
  - Muscular weakness [Unknown]
  - Stomatitis [Unknown]
  - Pruritus [Unknown]
  - Neutropenia [Recovered/Resolved]
  - Pyrexia [Recovered/Resolved]
  - Upper respiratory tract infection [Recovered/Resolved]
  - Large intestine infection [Unknown]
  - Neutropenia [Recovered/Resolved]
  - Constipation [Unknown]
  - Febrile neutropenia [Recovered/Resolved]
  - Neutropenia [Recovered/Resolved]
  - Lymphopenia [Unknown]
  - Febrile neutropenia [Recovered/Resolved]
  - Febrile neutropenia [Recovered/Resolved]
  - Febrile neutropenia [Recovered/Resolved]
  - Neutropenia [None]

NARRATIVE: CASE EVENT DATE: 20151110
